FAERS Safety Report 16848949 (Version 2)
Quarter: 2019Q4

REPORT INFORMATION
  Report Type: Spontaneous
  Country: FR (occurrence: FR)
  Receive Date: 20190925
  Receipt Date: 20191021
  Transmission Date: 20200122
  Serious: Yes (Death)
  Sender: FDA-Public Use
  Company Number: FR-EMD SERONO-E2B_90070880

PATIENT
  Age: 77 Year
  Weight: 90 kg

DRUGS (11)
  1. SPIRONOLACTONE. [Suspect]
     Active Substance: SPIRONOLACTONE
     Indication: HYPERTENSION
     Route: 048
     Dates: end: 20180902
  2. BISOPROLOL [Suspect]
     Active Substance: BISOPROLOL
     Indication: HYPERTENSION
     Route: 048
     Dates: end: 20180902
  3. ALPRAZOLAM. [Suspect]
     Active Substance: ALPRAZOLAM
     Indication: PRODUCT USED FOR UNKNOWN INDICATION
     Route: 048
     Dates: end: 20180902
  4. ZOPICLONE [Suspect]
     Active Substance: ZOPICLONE
     Indication: PRODUCT USED FOR UNKNOWN INDICATION
     Route: 048
     Dates: end: 20180902
  5. METFORMIN [Suspect]
     Active Substance: METFORMIN HYDROCHLORIDE
     Indication: DIABETES MELLITUS
     Route: 048
     Dates: end: 20180902
  6. KARDEGIC [Suspect]
     Active Substance: ASPIRIN DL-LYSINE
     Indication: ATRIAL FIBRILLATION
     Route: 048
     Dates: end: 20180902
  7. COUMADINE [Suspect]
     Active Substance: WARFARIN SODIUM
     Indication: ATRIAL FIBRILLATION
     Route: 048
     Dates: end: 20180902
  8. AMLOR [Suspect]
     Active Substance: AMLODIPINE BESYLATE
     Indication: HYPERTENSION
     Route: 048
     Dates: end: 20180902
  9. GLIMEPIRIDE. [Suspect]
     Active Substance: GLIMEPIRIDE
     Indication: DIABETES MELLITUS
     Route: 048
     Dates: end: 20180902
  10. DIFFU K [Suspect]
     Active Substance: POTASSIUM CHLORIDE
     Indication: PRODUCT USED FOR UNKNOWN INDICATION
     Route: 048
     Dates: end: 20180902
  11. FUROSEMIDE. [Suspect]
     Active Substance: FUROSEMIDE
     Indication: HYPERTENSION
     Route: 048
     Dates: end: 20180902

REACTIONS (3)
  - Acute kidney injury [Fatal]
  - Lactic acidosis [Fatal]
  - Hyperkalaemia [Fatal]

NARRATIVE: CASE EVENT DATE: 20180902
